FAERS Safety Report 20037951 (Version 2)
Quarter: 2021Q4

REPORT INFORMATION
  Report Type: Report from Study
  Country: FR (occurrence: FR)
  Receive Date: 20211105
  Receipt Date: 20211203
  Transmission Date: 20220303
  Serious: Yes (Hospitalization, Other)
  Sender: FDA-Public Use
  Company Number: FR-NOVARTISPH-NVSC2021FR058676

PATIENT
  Age: 71 Year
  Sex: Male
  Weight: 67 kg

DRUGS (4)
  1. ERELZI [Suspect]
     Active Substance: ETANERCEPT-SZZS
     Indication: Ankylosing spondylitis
     Dosage: 50 MG
     Route: 058
     Dates: start: 20201115, end: 20210123
  2. ERELZI [Suspect]
     Active Substance: ETANERCEPT-SZZS
     Dosage: 50 MG
     Route: 058
     Dates: start: 20201122
  3. ERELZI [Suspect]
     Active Substance: ETANERCEPT-SZZS
     Dosage: 50 MG (15 D)
     Route: 058
     Dates: start: 20210123
  4. XARELTO [Concomitant]
     Active Substance: RIVAROXABAN
     Indication: Joint arthroplasty
     Dosage: 20 IU
     Route: 065
     Dates: start: 20210222, end: 20210927

REACTIONS (3)
  - Peripheral ischaemia [Recovered/Resolved with Sequelae]
  - Aortic aneurysm [Recovered/Resolved]
  - Thrombosis [Unknown]

NARRATIVE: CASE EVENT DATE: 20210222
